FAERS Safety Report 10184634 (Version 2)
Quarter: 2014Q2

REPORT INFORMATION
  Report Type: Spontaneous
  Country: US (occurrence: US)
  Receive Date: 20140521
  Receipt Date: 20140521
  Transmission Date: 20141212
  Serious: Yes (Other)
  Sender: FDA-Public Use
  Company Number: US-RANBAXY-2011US-80979

PATIENT
  Age: 34 Year
  Sex: Female

DRUGS (5)
  1. ZOLPIDEM [Suspect]
     Indication: PANIC ATTACK
     Dosage: 2 DF, PRN
     Route: 065
  2. ZOLPIDEM [Suspect]
     Indication: ANXIETY
  3. ALPRAZOLAM [Suspect]
     Indication: PANIC ATTACK
     Dosage: 2 DF, PRN
     Route: 065
  4. ALPRAZOLAM [Suspect]
     Indication: ANXIETY
  5. LAMICTAL [Suspect]
     Indication: PRODUCT USED FOR UNKNOWN INDICATION
     Dosage: UNK
     Route: 065

REACTIONS (4)
  - Drug level increased [Unknown]
  - Dizziness [Unknown]
  - Coordination abnormal [Unknown]
  - Somnambulism [Unknown]
